FAERS Safety Report 7682609 (Version 2)
Quarter: 2012Q4

REPORT INFORMATION
  Report Type: Report from Study
  Country: US (occurrence: US)
  Receive Date: 20101124
  Receipt Date: 20121101
  Transmission Date: 20130627
  Serious: Yes (Other)
  Sender: FDA-Public Use
  Company Number: US-ABBOTT-10P-163-0686226-00

PATIENT
  Age: 79 None
  Sex: Female
  Weight: 48.58 kg

DRUGS (19)
  1. HUMIRA [Suspect]
     Dates: start: 2008, end: 201001
  2. VALIUM [Concomitant]
     Indication: PRODUCT USED FOR UNKNOWN INDICATION
  3. SPIRIVA [Concomitant]
     Indication: ASTHMA
  4. LEVOTHYROXINE SODIUM [Concomitant]
     Indication: HYPOTHYROIDISM
  5. SPIRONOLACTONE [Concomitant]
     Indication: FLUID RETENTION
     Dates: start: 1995
  6. SOMA [Concomitant]
     Indication: MUSCLE RELAXANT THERAPY
  7. LASIX [Concomitant]
     Indication: FLUID RETENTION
  8. DIGOXIN [Concomitant]
     Indication: MYOCARDIAL INFARCTION
  9. K-TAB [Concomitant]
     Indication: PRODUCT USED FOR UNKNOWN INDICATION
  10. IMURAN [Concomitant]
     Indication: ARTHRITIS
  11. COZAR [Concomitant]
     Indication: HYPERTENSION
  12. VYTORIN [Concomitant]
     Indication: BLOOD CHOLESTEROL INCREASED
     Dosage: 10/20 mg
  13. TOPROL [Concomitant]
     Indication: HYPERTENSION
  14. PLAVIX [Concomitant]
     Indication: BLOOD CHOLESTEROL INCREASED
  15. ISOSORBIDE [Concomitant]
     Indication: MYOCARDIAL INFARCTION
  16. NASONEX [Concomitant]
     Indication: ASTHMA
  17. PROVENTIL [Concomitant]
     Indication: ASTHMA
  18. OXYCODONE [Concomitant]
     Indication: PAIN
  19. ENDURA [Concomitant]
     Indication: RHEUMATOID ARTHRITIS
     Route: 048

REACTIONS (5)
  - Heart rate decreased [Recovered/Resolved]
  - Oedema peripheral [Not Recovered/Not Resolved]
  - Lipoma [Not Recovered/Not Resolved]
  - Rheumatoid arthritis [Not Recovered/Not Resolved]
  - Scar pain [Unknown]
